FAERS Safety Report 18818736 (Version 1)
Quarter: 2021Q1

REPORT INFORMATION
  Report Type: Spontaneous
  Country: PL (occurrence: PL)
  Receive Date: 20210201
  Receipt Date: 20210201
  Transmission Date: 20210419
  Serious: Yes (Hospitalization, Other)
  Sender: FDA-Public Use
  Company Number: PL-BRISTOL-MYERS SQUIBB COMPANY-BMS-2021-006813

PATIENT

DRUGS (6)
  1. NIVOLUMAB [Suspect]
     Active Substance: NIVOLUMAB
     Dosage: DOSE 3
     Route: 065
     Dates: start: 20140131
  2. IPILIMUMAB [Suspect]
     Active Substance: IPILIMUMAB
     Dosage: DOSE 2
     Route: 065
     Dates: start: 20140110
  3. NIVOLUMAB [Suspect]
     Active Substance: NIVOLUMAB
     Dosage: DOSE 2
     Route: 065
     Dates: start: 20140110
  4. IPILIMUMAB [Suspect]
     Active Substance: IPILIMUMAB
     Indication: PRODUCT USED FOR UNKNOWN INDICATION
     Dosage: DOSE 1
     Route: 065
     Dates: start: 20131220
  5. NIVOLUMAB [Suspect]
     Active Substance: NIVOLUMAB
     Indication: PRODUCT USED FOR UNKNOWN INDICATION
     Dosage: DOSE 1
     Route: 065
     Dates: start: 20131220
  6. IPILIMUMAB [Suspect]
     Active Substance: IPILIMUMAB
     Dosage: DOSE 3
     Route: 065
     Dates: start: 20140131

REACTIONS (3)
  - Thyroid function test abnormal [Recovered/Resolved]
  - Hepatotoxicity [Recovered/Resolved]
  - Headache [Unknown]

NARRATIVE: CASE EVENT DATE: 201402
